FAERS Safety Report 23641414 (Version 1)
Quarter: 2024Q1

REPORT INFORMATION
  Report Type: Report from Study
  Country: US (occurrence: US)
  Receive Date: 20240318
  Receipt Date: 20240318
  Transmission Date: 20240410
  Serious: Yes (Hospitalization, Other)
  Sender: FDA-Public Use
  Company Number: US-EXELIXIS-CABO-24075021

PATIENT
  Sex: Female
  Weight: 113.38 kg

DRUGS (14)
  1. CABOMETYX [Suspect]
     Active Substance: CABOZANTINIB S-MALATE
     Indication: Renal cancer
     Dosage: 60 MG
     Dates: start: 202108
  2. CABOMETYX [Suspect]
     Active Substance: CABOZANTINIB S-MALATE
     Dosage: 30 MG (SPLIT 60 MG IN HALF)
  3. CABOMETYX [Suspect]
     Active Substance: CABOZANTINIB S-MALATE
     Dosage: 40 MG
  4. CABOMETYX [Suspect]
     Active Substance: CABOZANTINIB S-MALATE
     Dosage: 20 MG, QD
     Route: 048
  5. Acid reducer [Concomitant]
  6. LEVETIRACETAM [Concomitant]
     Active Substance: LEVETIRACETAM
  7. GABAPENTIN [Concomitant]
     Active Substance: GABAPENTIN
  8. ELIQUIS [Concomitant]
     Active Substance: APIXABAN
  9. VITAMIN B12 [Concomitant]
     Active Substance: CYANOCOBALAMIN
  10. ZINC [Concomitant]
     Active Substance: PYRITHIONE ZINC\ZINC\ZINC CHLORIDE
  11. SERTRALINE HYDROCHLORIDE [Concomitant]
     Active Substance: SERTRALINE HYDROCHLORIDE
  12. VITAMIN C [Concomitant]
     Active Substance: ASCORBIC ACID
  13. VITAMIN D3 [Concomitant]
     Active Substance: CHOLECALCIFEROL
  14. METOPROLOL SUCCINATE [Concomitant]
     Active Substance: METOPROLOL SUCCINATE

REACTIONS (13)
  - Neuropathy peripheral [Recovering/Resolving]
  - Ulcer haemorrhage [Recovered/Resolved]
  - Dehydration [Recovering/Resolving]
  - Sepsis [Recovering/Resolving]
  - Infection [Recovering/Resolving]
  - Cerebrovascular accident [Recovering/Resolving]
  - Metastases to central nervous system [Recovering/Resolving]
  - Parosmia [Recovering/Resolving]
  - Drug intolerance [Recovering/Resolving]
  - Taste disorder [Recovering/Resolving]
  - Walking aid user [Unknown]
  - Wrong technique in product usage process [Unknown]
  - Product prescribing issue [Unknown]
